FAERS Safety Report 8138620-3 (Version None)
Quarter: 2012Q1

REPORT INFORMATION
  Report Type: 
  Country: None (occurrence: None)
  Receive Date: 20120215
  Receipt Date: 20120209
  Transmission Date: 20120608
  Serious: Yes (Hospitalization)
  Sender: FDA-Public Use
  Company Number: CO-B.I. PHARMACEUTICALS,INC./RIDGEFIELD-2012-RA-00025RA

PATIENT
  Age: 75 Year
  Sex: Male
  Weight: 96 kg

DRUGS (6)
  1. DIGOXIN [Concomitant]
     Indication: CARDIAC FAILURE
     Dosage: 4 DROPS DAILY
     Route: 048
  2. VALSARTAN [Concomitant]
     Indication: HYPERTENSION
     Dosage: 80 MG
     Route: 048
  3. SPIRONOLACTONE [Concomitant]
     Indication: CARDIAC FAILURE
     Dosage: 25 MG
     Route: 048
  4. PRADAXA [Suspect]
     Indication: CEREBROVASCULAR ACCIDENT PROPHYLAXIS
     Dosage: 220 MG
     Route: 048
     Dates: start: 20110801, end: 20111201
  5. EZETIMIBE/SIMVASTATIN [Concomitant]
     Indication: DYSLIPIDAEMIA
     Dosage: 10/20 MG, 10/20 MG DAILY
     Route: 048
  6. TRAZODONE HCL [Concomitant]
     Indication: INSOMNIA
     Dosage: 50 MG
     Route: 048

REACTIONS (1)
  - ISCHAEMIC STROKE [None]
